FAERS Safety Report 19106532 (Version 1)
Quarter: 2021Q2

REPORT INFORMATION
  Report Type: Spontaneous
  Country: CN (occurrence: CN)
  Receive Date: 20210407
  Receipt Date: 20210407
  Transmission Date: 20210717
  Serious: Yes (Disabling)
  Sender: FDA-Public Use
  Company Number: CN-BAXTER-2021BAX006609

PATIENT
  Age: 93 Year
  Sex: Female
  Weight: 42.5 kg

DRUGS (3)
  1. KAIFEN [FLURBIPROFEN AXETIL] [Suspect]
     Active Substance: FLURBIPROFEN AXETIL
     Indication: ANALGESIC THERAPY
     Route: 042
     Dates: start: 20210316, end: 20210318
  2. 20% MANNITOL INJECTION [Suspect]
     Active Substance: MANNITOL
     Indication: SWELLING
     Route: 041
     Dates: start: 20210316, end: 20210320
  3. SODIUM CHLORIDE. [Suspect]
     Active Substance: SODIUM CHLORIDE
     Indication: MEDICATION DILUTION
     Route: 042
     Dates: start: 20210316, end: 20210318

REACTIONS (1)
  - Renal impairment [Recovered/Resolved]

NARRATIVE: CASE EVENT DATE: 20210317
